FAERS Safety Report 5137090-7 (Version None)
Quarter: 2006Q4

REPORT INFORMATION
  Report Type: 
  Country: None (occurrence: None)
  Receive Date: 20061030
  Receipt Date: 20061016
  Transmission Date: 20070319
  Serious: Yes (Disabling, Other)
  Sender: FDA-Public Use
  Company Number: PHBS2006IT16249

PATIENT
  Age: 75 Year
  Sex: Female

DRUGS (1)
  1. ZOMETA [Suspect]
     Indication: MULTIPLE MYELOMA
     Dosage: 4 MG, EVERY MONTH
     Route: 042
     Dates: start: 20041208, end: 20060509

REACTIONS (2)
  - OSTEITIS [None]
  - PNEUMONIA KLEBSIELLA [None]
